FAERS Safety Report 7649131-3 (Version None)
Quarter: 2011Q3

REPORT INFORMATION
  Report Type: 
  Country: None (occurrence: None)
  Receive Date: 20110802
  Receipt Date: 20110720
  Transmission Date: 20111222
  Serious: Yes (Other)
  Sender: FDA-Public Use
  Company Number: GB-ELI_LILLY_AND_COMPANY-GB201104000138

PATIENT
  Sex: Male

DRUGS (5)
  1. BYETTA [Suspect]
     Dosage: 5 UG, BID
     Dates: start: 20110509
  2. BYETTA [Suspect]
     Dosage: 5 UG, UNKNOWN
     Dates: start: 20110214, end: 20110313
  3. BYETTA [Suspect]
     Dosage: 10 UG, UNKNOWN
  4. INSULIN [Concomitant]
  5. BYETTA [Suspect]
     Dosage: 10 UG, UNKNOWN
     Dates: start: 20110314

REACTIONS (6)
  - OFF LABEL USE [None]
  - POSTOPERATIVE FEVER [None]
  - MUSCULOSKELETAL PAIN [None]
  - PAIN IN EXTREMITY [None]
  - ARTHRALGIA [None]
  - MUSCULOSKELETAL STIFFNESS [None]
